FAERS Safety Report 10864862 (Version 18)
Quarter: 2025Q3

REPORT INFORMATION
  Report Type: Report from Study
  Country: BR (occurrence: BR)
  Receive Date: 20150224
  Receipt Date: 20250812
  Transmission Date: 20251020
  Serious: Yes (Other)
  Sender: GLAXOSMITHKLINE
  Company Number: BR-GLAXOSMITHKLINE-BR2015GSK023439

PATIENT
  Age: 52 Year
  Sex: Female
  Weight: 74.83 kg

DRUGS (6)
  1. BELIMUMAB [Suspect]
     Active Substance: BELIMUMAB
     Indication: Systemic lupus erythematosus
  2. BELIMUMAB [Suspect]
     Active Substance: BELIMUMAB
     Dosage: UNK, Q4W, (6 X 120 MG)
  3. BELIMUMAB [Suspect]
     Active Substance: BELIMUMAB
     Dosage: UNK, Q4W, (7 X 120 MG)
  4. BELIMUMAB [Suspect]
     Active Substance: BELIMUMAB
  5. CYCLOPHOSPHAMIDE [Concomitant]
     Active Substance: CYCLOPHOSPHAMIDE
     Indication: Product used for unknown indication
  6. INFLUENZA VIRUS VACCINE [Concomitant]
     Active Substance: INFLUENZA VIRUS VACCINE
     Indication: Influenza

REACTIONS (17)
  - Renal impairment [Recovered/Resolved]
  - Nephritis [Unknown]
  - Protein urine present [Recovered/Resolved]
  - Condition aggravated [Recovered/Resolved]
  - Onychoclasis [Recovered/Resolved]
  - Alopecia [Recovered/Resolved]
  - Skin wound [Recovered/Resolved]
  - Overweight [Recovered/Resolved]
  - Erythema [Unknown]
  - Tooth fracture [Unknown]
  - Influenza [Recovered/Resolved]
  - Pain [Recovered/Resolved]
  - Nasopharyngitis [Unknown]
  - Therapeutic response unexpected [Unknown]
  - Product dose omission issue [Unknown]
  - Drug ineffective [Unknown]
  - Inappropriate schedule of product administration [Unknown]

NARRATIVE: CASE EVENT DATE: 20180801
